FAERS Safety Report 8362852-2 (Version None)
Quarter: 2012Q2

REPORT INFORMATION
  Report Type: 
  Country: None (occurrence: None)
  Receive Date: 20120516
  Receipt Date: 20120512
  Transmission Date: 20120825
  Serious: Yes (Hospitalization, Other)
  Sender: FDA-Public Use
  Company Number: PHHY2012NL026941

PATIENT
  Sex: Male

DRUGS (13)
  1. SPIRONOLACTONE [Concomitant]
     Dosage: 25 MG, UNK
  2. FIRMAGON [Concomitant]
     Dosage: 80 MG, ONCE A MONTH
  3. ZOMETA [Suspect]
     Indication: PROSTATE CANCER METASTATIC
     Dosage: 4 MG / 100ML  ONCE IN 28 DAYS
     Route: 042
     Dates: start: 20110221
  4. ZOMETA [Suspect]
     Dosage: 4 MG / 100ML  ONCE IN 28 DAYS
     Route: 042
     Dates: start: 20120316
  5. ZYTIGA [Concomitant]
     Dosage: 250 MG, UNK
  6. ZOMETA [Suspect]
     Dosage: 4 MG / 100ML  ONCE IN 28 DAYS
     Route: 042
     Dates: start: 20120512
  7. MORPHINE [Concomitant]
     Dosage: 10 MG, UNK
  8. ACETAMINOPHEN [Concomitant]
     Dosage: 500 MG, UNK
  9. COAPROVEL [Concomitant]
     Dosage: 300 MG, UNK
  10. ANDROCUR [Concomitant]
     Dosage: 80 MG, NOCE A MONTH
  11. OMEPRAZOLE [Concomitant]
     Dosage: 40 MG, UNK
  12. PREDNISONE [Concomitant]
     Dosage: 5 MG, UNK
  13. ARTHROTEC [Concomitant]
     Dosage: 75 MG, UNK

REACTIONS (10)
  - PAIN IN EXTREMITY [None]
  - WALKING DISABILITY [None]
  - RENAL IMPAIRMENT [None]
  - HAEMOGLOBIN DECREASED [None]
  - INFECTION [None]
  - PALLOR [None]
  - PAIN [None]
  - INFLAMMATION [None]
  - PYREXIA [None]
  - SCIATICA [None]
